FAERS Safety Report 6403353-8 (Version None)
Quarter: 2009Q4

REPORT INFORMATION
  Report Type: 
  Country: None (occurrence: None)
  Receive Date: 20091016
  Receipt Date: 20091008
  Transmission Date: 20100525
  Serious: Yes (Hospitalization)
  Sender: FDA-Public Use
  Company Number: BR-ABBOTT-09P-020-0596810-00

PATIENT
  Sex: Female
  Weight: 62 kg

DRUGS (3)
  1. HUMIRA [Suspect]
     Indication: CROHN'S DISEASE
     Dosage: 1 INJECTION
     Route: 058
     Dates: start: 20080101, end: 20090815
  2. HUMIRA [Suspect]
     Route: 058
     Dates: start: 20090815
  3. CAPTOPRIL [Concomitant]
     Indication: HYPERTENSION
     Dosage: 2 EVERY 8 HOURS-150MG DAILY
     Route: 048

REACTIONS (2)
  - ABDOMINAL PAIN [None]
  - HAEMATOCHEZIA [None]
